FAERS Safety Report 22193351 (Version 1)
Quarter: 2023Q2

REPORT INFORMATION
  Report Type: Spontaneous
  Country: FR (occurrence: FR)
  Receive Date: 20230410
  Receipt Date: 20230410
  Transmission Date: 20230722
  Serious: Yes (Other)
  Sender: FDA-Public Use
  Company Number: FR-BIOGARAN-B23000551

PATIENT
  Age: 38 Year
  Sex: Female

DRUGS (99)
  1. DIAZEPAM [Interacting]
     Active Substance: DIAZEPAM
     Indication: Major depression
     Route: 065
     Dates: start: 20220422, end: 20220422
  2. DIAZEPAM [Interacting]
     Active Substance: DIAZEPAM
     Route: 065
     Dates: start: 20220423, end: 20220423
  3. DIAZEPAM [Interacting]
     Active Substance: DIAZEPAM
     Route: 065
     Dates: start: 20220426, end: 20220426
  4. DIAZEPAM [Interacting]
     Active Substance: DIAZEPAM
     Route: 065
     Dates: start: 20220528, end: 20220528
  5. DIAZEPAM [Interacting]
     Active Substance: DIAZEPAM
     Route: 065
     Dates: start: 20220605, end: 20220605
  6. DIAZEPAM [Interacting]
     Active Substance: DIAZEPAM
     Route: 065
     Dates: start: 20220608, end: 20220608
  7. DIAZEPAM [Interacting]
     Active Substance: DIAZEPAM
     Route: 065
     Dates: start: 20220610, end: 20220610
  8. DIAZEPAM [Interacting]
     Active Substance: DIAZEPAM
     Route: 065
     Dates: start: 20220611, end: 20220611
  9. DIAZEPAM [Interacting]
     Active Substance: DIAZEPAM
     Route: 065
     Dates: start: 20220612, end: 20220612
  10. DIAZEPAM [Interacting]
     Active Substance: DIAZEPAM
     Route: 065
     Dates: start: 20220613, end: 20220613
  11. DIAZEPAM [Interacting]
     Active Substance: DIAZEPAM
     Route: 065
     Dates: start: 20220622, end: 20220622
  12. DIAZEPAM [Interacting]
     Active Substance: DIAZEPAM
     Route: 065
     Dates: start: 20220623, end: 20220623
  13. DIAZEPAM [Interacting]
     Active Substance: DIAZEPAM
     Route: 065
     Dates: start: 20220624, end: 20220624
  14. DIAZEPAM [Interacting]
     Active Substance: DIAZEPAM
     Route: 065
     Dates: start: 20220625, end: 20220625
  15. DIAZEPAM [Interacting]
     Active Substance: DIAZEPAM
     Route: 065
     Dates: start: 20220626, end: 20220626
  16. DIAZEPAM [Interacting]
     Active Substance: DIAZEPAM
     Route: 065
     Dates: start: 20220701, end: 20220701
  17. DIAZEPAM [Interacting]
     Active Substance: DIAZEPAM
     Route: 065
     Dates: start: 20220705, end: 20220705
  18. ARIPIPRAZOLE [Interacting]
     Active Substance: ARIPIPRAZOLE
     Indication: Major depression
     Route: 065
     Dates: start: 20220622, end: 20220622
  19. ARIPIPRAZOLE [Interacting]
     Active Substance: ARIPIPRAZOLE
     Route: 065
     Dates: start: 20220624, end: 20220624
  20. ARIPIPRAZOLE [Interacting]
     Active Substance: ARIPIPRAZOLE
     Route: 065
     Dates: start: 20220612, end: 20220612
  21. ARIPIPRAZOLE [Interacting]
     Active Substance: ARIPIPRAZOLE
     Route: 065
     Dates: start: 20220613, end: 20220613
  22. ARIPIPRAZOLE [Interacting]
     Active Substance: ARIPIPRAZOLE
     Route: 065
     Dates: start: 20220610, end: 20220610
  23. ARIPIPRAZOLE [Interacting]
     Active Substance: ARIPIPRAZOLE
     Route: 065
     Dates: start: 20220705, end: 20220705
  24. ARIPIPRAZOLE [Interacting]
     Active Substance: ARIPIPRAZOLE
     Route: 065
     Dates: start: 20220701, end: 20220701
  25. ARIPIPRAZOLE [Interacting]
     Active Substance: ARIPIPRAZOLE
     Route: 065
     Dates: start: 20220611
  26. ARIPIPRAZOLE [Interacting]
     Active Substance: ARIPIPRAZOLE
     Route: 065
     Dates: start: 20220623
  27. ARIPIPRAZOLE [Interacting]
     Active Substance: ARIPIPRAZOLE
     Route: 065
     Dates: start: 20220625
  28. ARIPIPRAZOLE [Interacting]
     Active Substance: ARIPIPRAZOLE
     Route: 065
     Dates: start: 20220626
  29. ZOPICLONE [Interacting]
     Active Substance: ZOPICLONE
     Indication: Major depression
     Route: 065
     Dates: start: 20220422, end: 20220423
  30. ZOPICLONE [Interacting]
     Active Substance: ZOPICLONE
     Route: 065
     Dates: start: 20220622, end: 20220622
  31. ZOPICLONE [Interacting]
     Active Substance: ZOPICLONE
     Route: 065
     Dates: start: 20220705, end: 20220705
  32. ZOPICLONE [Interacting]
     Active Substance: ZOPICLONE
     Route: 065
     Dates: start: 20220605, end: 20220605
  33. ZOPICLONE [Interacting]
     Active Substance: ZOPICLONE
     Route: 065
     Dates: start: 20220608, end: 20220608
  34. ZOPICLONE [Interacting]
     Active Substance: ZOPICLONE
     Route: 065
     Dates: start: 20220610, end: 20220610
  35. ZOPICLONE [Interacting]
     Active Substance: ZOPICLONE
     Route: 065
     Dates: start: 20220528, end: 20220528
  36. ZOPICLONE [Interacting]
     Active Substance: ZOPICLONE
     Route: 065
     Dates: start: 20220426, end: 20220426
  37. ZOPICLONE [Interacting]
     Active Substance: ZOPICLONE
     Route: 065
     Dates: start: 20220701, end: 20220701
  38. ZOPICLONE [Interacting]
     Active Substance: ZOPICLONE
     Route: 065
     Dates: start: 20220423, end: 20220423
  39. ZOPICLONE [Interacting]
     Active Substance: ZOPICLONE
     Route: 065
     Dates: start: 20220611, end: 20220611
  40. ZOPICLONE [Interacting]
     Active Substance: ZOPICLONE
     Route: 065
     Dates: start: 20220613, end: 20220613
  41. ZOPICLONE [Interacting]
     Active Substance: ZOPICLONE
     Route: 065
     Dates: start: 20220623, end: 20220623
  42. ZOPICLONE [Interacting]
     Active Substance: ZOPICLONE
     Route: 065
     Dates: start: 20220624, end: 20220624
  43. ZOPICLONE [Interacting]
     Active Substance: ZOPICLONE
     Route: 065
     Dates: start: 20220625, end: 20220625
  44. ZOPICLONE [Interacting]
     Active Substance: ZOPICLONE
     Route: 065
     Dates: start: 20220626, end: 20220626
  45. ZOPICLONE [Interacting]
     Active Substance: ZOPICLONE
     Route: 065
     Dates: start: 20220612, end: 20220612
  46. LAMOTRIGINE [Interacting]
     Active Substance: LAMOTRIGINE
     Indication: Major depression
     Route: 065
     Dates: start: 20220623, end: 20220623
  47. LAMOTRIGINE [Interacting]
     Active Substance: LAMOTRIGINE
     Route: 065
     Dates: start: 20220610, end: 20220610
  48. LAMOTRIGINE [Interacting]
     Active Substance: LAMOTRIGINE
     Route: 065
     Dates: start: 20220608, end: 20220608
  49. LAMOTRIGINE [Interacting]
     Active Substance: LAMOTRIGINE
     Route: 065
     Dates: start: 20220622, end: 20220622
  50. LAMOTRIGINE [Interacting]
     Active Substance: LAMOTRIGINE
     Route: 065
     Dates: start: 20220701, end: 20220701
  51. LAMOTRIGINE [Interacting]
     Active Substance: LAMOTRIGINE
     Route: 065
     Dates: start: 20220705, end: 20220705
  52. LAMOTRIGINE [Interacting]
     Active Substance: LAMOTRIGINE
     Route: 065
     Dates: start: 20220611, end: 20220611
  53. LAMOTRIGINE [Interacting]
     Active Substance: LAMOTRIGINE
     Route: 065
     Dates: start: 20220625, end: 20220625
  54. LAMOTRIGINE [Interacting]
     Active Substance: LAMOTRIGINE
     Route: 065
     Dates: start: 20220613, end: 20220613
  55. LAMOTRIGINE [Interacting]
     Active Substance: LAMOTRIGINE
     Route: 065
     Dates: start: 20220624, end: 20220624
  56. LAMOTRIGINE [Interacting]
     Active Substance: LAMOTRIGINE
     Route: 065
     Dates: start: 20220625, end: 20220625
  57. LAMOTRIGINE [Interacting]
     Active Substance: LAMOTRIGINE
     Route: 065
     Dates: start: 20220626, end: 20220626
  58. MIRTAZAPINE [Concomitant]
     Active Substance: MIRTAZAPINE
     Indication: Major depression
     Route: 065
     Dates: start: 20220610, end: 20220610
  59. MIRTAZAPINE [Concomitant]
     Active Substance: MIRTAZAPINE
     Route: 065
     Dates: start: 20220611, end: 20220611
  60. MIRTAZAPINE [Concomitant]
     Active Substance: MIRTAZAPINE
     Route: 065
     Dates: start: 20220612, end: 20220612
  61. MIRTAZAPINE [Concomitant]
     Active Substance: MIRTAZAPINE
     Route: 065
     Dates: start: 20220613, end: 20220613
  62. MIRTAZAPINE [Concomitant]
     Active Substance: MIRTAZAPINE
     Route: 065
     Dates: start: 20220622, end: 20220622
  63. MIRTAZAPINE [Concomitant]
     Active Substance: MIRTAZAPINE
     Route: 065
     Dates: start: 20220623, end: 20220623
  64. MIRTAZAPINE [Concomitant]
     Active Substance: MIRTAZAPINE
     Route: 065
     Dates: start: 20220624, end: 20220625
  65. ETONOGESTREL [Concomitant]
     Active Substance: ETONOGESTREL
     Indication: Contraceptive implant
     Route: 065
     Dates: start: 2021
  66. CYAMEMAZINE [Concomitant]
     Active Substance: CYAMEMAZINE
     Indication: Major depression
     Route: 065
     Dates: start: 20220422, end: 20220422
  67. CYAMEMAZINE [Concomitant]
     Active Substance: CYAMEMAZINE
     Route: 065
     Dates: start: 20220423, end: 20220423
  68. CYAMEMAZINE [Concomitant]
     Active Substance: CYAMEMAZINE
     Route: 065
     Dates: start: 20220426, end: 20220426
  69. CYAMEMAZINE [Concomitant]
     Active Substance: CYAMEMAZINE
     Route: 065
     Dates: start: 20220428, end: 20220428
  70. CYAMEMAZINE [Concomitant]
     Active Substance: CYAMEMAZINE
     Route: 065
     Dates: start: 20220605, end: 20220605
  71. CYAMEMAZINE [Concomitant]
     Active Substance: CYAMEMAZINE
     Route: 065
     Dates: start: 20220608, end: 20220608
  72. CYAMEMAZINE [Concomitant]
     Active Substance: CYAMEMAZINE
     Route: 065
     Dates: start: 20220610, end: 20220610
  73. CYAMEMAZINE [Concomitant]
     Active Substance: CYAMEMAZINE
     Route: 065
     Dates: start: 20220611, end: 20220611
  74. CYAMEMAZINE [Concomitant]
     Active Substance: CYAMEMAZINE
     Route: 065
     Dates: start: 20220612, end: 20220612
  75. CYAMEMAZINE [Concomitant]
     Active Substance: CYAMEMAZINE
     Route: 065
     Dates: start: 20220613, end: 20220613
  76. CYAMEMAZINE [Concomitant]
     Active Substance: CYAMEMAZINE
     Route: 065
     Dates: start: 20220622, end: 20220622
  77. CYAMEMAZINE [Concomitant]
     Active Substance: CYAMEMAZINE
     Route: 065
     Dates: start: 20220623, end: 20220623
  78. CYAMEMAZINE [Concomitant]
     Active Substance: CYAMEMAZINE
     Route: 065
     Dates: start: 20220624, end: 20220624
  79. CYAMEMAZINE [Concomitant]
     Active Substance: CYAMEMAZINE
     Route: 065
     Dates: start: 20220625, end: 20220625
  80. CYAMEMAZINE [Concomitant]
     Active Substance: CYAMEMAZINE
     Route: 065
     Dates: start: 20220626, end: 20220626
  81. CYAMEMAZINE [Concomitant]
     Active Substance: CYAMEMAZINE
     Route: 065
     Dates: start: 20220701, end: 20220701
  82. CYAMEMAZINE [Concomitant]
     Active Substance: CYAMEMAZINE
     Route: 065
     Dates: start: 20220705, end: 20220705
  83. PAROXETINE [Concomitant]
     Active Substance: PAROXETINE
     Indication: Major depression
     Dates: start: 20220423, end: 20220423
  84. PAROXETINE [Concomitant]
     Active Substance: PAROXETINE
     Dates: start: 20220426, end: 20220426
  85. PAROXETINE [Concomitant]
     Active Substance: PAROXETINE
     Dates: start: 20220428, end: 20220428
  86. PAROXETINE [Concomitant]
     Active Substance: PAROXETINE
     Dates: start: 20220605, end: 20220605
  87. PAROXETINE [Concomitant]
     Active Substance: PAROXETINE
     Dates: start: 20220608, end: 20220608
  88. PAROXETINE [Concomitant]
     Active Substance: PAROXETINE
     Dates: start: 20220610, end: 20220610
  89. PAROXETINE [Concomitant]
     Active Substance: PAROXETINE
     Dates: start: 20220611, end: 20220611
  90. PAROXETINE [Concomitant]
     Active Substance: PAROXETINE
     Dates: start: 20220612, end: 20220612
  91. PAROXETINE [Concomitant]
     Active Substance: PAROXETINE
     Dates: start: 20220613, end: 20220613
  92. PAROXETINE [Concomitant]
     Active Substance: PAROXETINE
     Dates: start: 20220622, end: 20220622
  93. PAROXETINE [Concomitant]
     Active Substance: PAROXETINE
     Dates: start: 20220623, end: 20220623
  94. PAROXETINE [Concomitant]
     Active Substance: PAROXETINE
     Dates: start: 20220624, end: 20220624
  95. PAROXETINE [Concomitant]
     Active Substance: PAROXETINE
     Dates: start: 20220625, end: 20220625
  96. QUETIAPINE [Concomitant]
     Active Substance: QUETIAPINE
     Indication: Major depression
     Route: 065
     Dates: start: 202203, end: 20220422
  97. QUETIAPINE [Concomitant]
     Active Substance: QUETIAPINE
     Route: 065
     Dates: start: 20220423, end: 20220423
  98. QUETIAPINE [Concomitant]
     Active Substance: QUETIAPINE
     Route: 065
     Dates: start: 20220426, end: 20220426
  99. QUETIAPINE [Concomitant]
     Active Substance: QUETIAPINE
     Route: 065
     Dates: start: 20220428, end: 20220428

REACTIONS (2)
  - Delirium [Recovered/Resolved]
  - Drug-genetic interaction [Recovered/Resolved]

NARRATIVE: CASE EVENT DATE: 20220611
